FAERS Safety Report 18917698 (Version 3)
Quarter: 2021Q3

REPORT INFORMATION
  Report Type: Spontaneous
  Country: US (occurrence: US)
  Receive Date: 20210219
  Receipt Date: 20210708
  Transmission Date: 20211014
  Serious: No
  Sender: FDA-Public Use
  Company Number: US-PFIZER INC-2021145271

PATIENT
  Age: 37 Year
  Sex: Female
  Weight: 96.6 kg

DRUGS (1)
  1. XELJANZ [Suspect]
     Active Substance: TOFACITINIB CITRATE
     Indication: COLITIS ULCERATIVE
     Dosage: 10 MG, 2X/DAY
     Route: 048
     Dates: start: 202009

REACTIONS (4)
  - Haemorrhoids [Unknown]
  - Condition aggravated [Recovered/Resolved]
  - Fatigue [Recovering/Resolving]
  - Herpes zoster [Unknown]
